FAERS Safety Report 9452709 (Version 1)
Quarter: 2013Q3

REPORT INFORMATION
  Report Type: Spontaneous
  Country: BR (occurrence: BR)
  Receive Date: 20130812
  Receipt Date: 20130812
  Transmission Date: 20140515
  Serious: Yes (Hospitalization)
  Sender: FDA-Public Use
  Company Number: PHHY2013BR084653

PATIENT
  Age: 23 Year
  Sex: Male

DRUGS (3)
  1. CLOZAPINE [Suspect]
     Indication: SCHIZOPHRENIA
     Dosage: 500 MG, QD
  2. CLOZAPINE [Suspect]
     Dosage: UNK
  3. CLOMIPRAMINE [Concomitant]
     Indication: OBSESSIVE-COMPULSIVE DISORDER
     Dosage: 75 MG,

REACTIONS (11)
  - Dengue fever [Unknown]
  - Pyrexia [Unknown]
  - Nausea [Unknown]
  - Bone pain [Unknown]
  - Myalgia [Unknown]
  - Rash maculo-papular [Unknown]
  - Platelet count decreased [Recovered/Resolved]
  - White blood cell count decreased [Recovered/Resolved]
  - Neutrophil count decreased [Recovered/Resolved]
  - Schizophrenia [Recovering/Resolving]
  - Catatonia [Unknown]
